FAERS Safety Report 11588389 (Version 1)
Quarter: 2015Q4

REPORT INFORMATION
  Report Type: Spontaneous
  Country: US (occurrence: None)
  Receive Date: 20151001
  Receipt Date: 20151001
  Transmission Date: 20160304
  Serious: No
  Sender: FDA-Public Use
  Company Number: None

PATIENT
  Age: 62 Year
  Sex: Male
  Weight: 80.29 kg

DRUGS (6)
  1. TUMERIC [Concomitant]
     Active Substance: TURMERIC
  2. ZYCLARA [Suspect]
     Active Substance: IMIQUIMOD
     Indication: ACTINIC KERATOSIS
     Dosage: APPLIED TO A SURFACE, USUALLY6 THE SKIN
     Dates: start: 20150918, end: 20150928
  3. MULTIVITAMINS [Concomitant]
     Active Substance: VITAMINS
  4. FISH OIL [Concomitant]
     Active Substance: FISH OIL
  5. VIAGRA [Concomitant]
     Active Substance: SILDENAFIL CITRATE
  6. CLARITIN [Concomitant]
     Active Substance: LORATADINE

REACTIONS (2)
  - Influenza like illness [None]
  - Back pain [None]

NARRATIVE: CASE EVENT DATE: 20150930
